APPROVED DRUG PRODUCT: HYDROCORTISONE BUTYRATE
Active Ingredient: HYDROCORTISONE BUTYRATE
Strength: 0.1%
Dosage Form/Route: CREAM;TOPICAL
Application: A205134 | Product #001 | TE Code: AB2
Applicant: ACTAVIS MID ATLANTIC LLC
Approved: Dec 8, 2017 | RLD: No | RS: No | Type: RX